FAERS Safety Report 9347827 (Version 1)
Quarter: 2013Q2

REPORT INFORMATION
  Report Type: Spontaneous
  Country: US (occurrence: None)
  Receive Date: 20130612
  Receipt Date: 20130612
  Transmission Date: 20140414
  Serious: Yes (Life-Threatening)
  Sender: FDA-Public Use
  Company Number: None

PATIENT
  Age: 64 Year
  Sex: Male
  Weight: 94.35 kg

DRUGS (2)
  1. TERAZOSIN [Suspect]
     Indication: PROSTATOMEGALY
     Dosage: 1 AT BEDTIME
     Dates: start: 20120509
  2. TERAZOSIN [Suspect]
     Indication: DYSURIA
     Dosage: 1 AT BEDTIME
     Dates: start: 20120509

REACTIONS (1)
  - Fall [None]
